FAERS Safety Report 6830755-8 (Version None)
Quarter: 2010Q3

REPORT INFORMATION
  Report Type: 
  Country: None (occurrence: None)
  Receive Date: 20100712
  Receipt Date: 20100628
  Transmission Date: 20110219
  Serious: Yes (Other)
  Sender: FDA-Public Use
  Company Number: PHHY2010CA42326

PATIENT
  Sex: Female

DRUGS (3)
  1. ACLASTA/ZOLEDRONATE T29581+A+ [Suspect]
     Indication: OSTEOPOROSIS
     Dosage: 5MG/100ML
     Dates: start: 20080101
  2. VITAMIN D [Concomitant]
     Dosage: UNK
     Dates: start: 20020101
  3. CALCIUM [Concomitant]
     Dosage: UNK
     Dates: start: 20020101

REACTIONS (1)
  - WRIST FRACTURE [None]
